FAERS Safety Report 23939117 (Version 2)
Quarter: 2024Q3

REPORT INFORMATION
  Report Type: Report from Study
  Country: US (occurrence: US)
  Receive Date: 20240604
  Receipt Date: 20240811
  Transmission Date: 20241016
  Serious: Yes (Other)
  Sender: ABBVIE
  Company Number: US-ABBVIE-5783016

PATIENT
  Sex: Female

DRUGS (1)
  1. RINVOQ [Suspect]
     Active Substance: UPADACITINIB
     Indication: Product used for unknown indication
     Route: 048
     Dates: start: 20221001

REACTIONS (9)
  - Joint warmth [Unknown]
  - Thyroid disorder [Unknown]
  - Hypertension [Unknown]
  - Musculoskeletal disorder [Unknown]
  - Unevaluable event [Unknown]
  - Memory impairment [Unknown]
  - Dysstasia [Unknown]
  - Gait disturbance [Unknown]
  - COVID-19 [Unknown]

NARRATIVE: CASE EVENT DATE: 20220101
